FAERS Safety Report 4968641-0 (Version None)
Quarter: 2006Q2

REPORT INFORMATION
  Report Type: 
  Country: None (occurrence: None)
  Receive Date: 20060405
  Receipt Date: 20060321
  Transmission Date: 20061013
  Serious: Yes (Life-Threatening)
  Sender: FDA-Public Use
  Company Number: 2006028476

PATIENT
  Age: 43 Year
  Sex: Female
  Weight: 66 kg

DRUGS (12)
  1. CLINDAMYCIN PHOSPHATE [Suspect]
     Indication: PROPHYLAXIS
     Dosage: 600 MG (1 IN 1 D), INTRAVENOUS
     Route: 042
     Dates: start: 20060113, end: 20060113
  2. NEFOPAM (NEFOPAM) [Suspect]
     Indication: ILL-DEFINED DISORDER
     Dosage: 20 MG, INTRAVENOUS
     Route: 042
     Dates: start: 20060113, end: 20060113
  3. DROPERIDOL [Suspect]
     Indication: ILL-DEFINED DISORDER
     Dosage: 1.25 MG (1 IN 1 D), INTRAVENOUS
     Route: 042
     Dates: start: 20060113, end: 20060113
  4. RANITIDINE HYDROCHLORIDE [Suspect]
     Indication: ILL-DEFINED DISORDER
     Dosage: 50 MG (1 IN 1 D), INTRAVENOUS
     Route: 042
     Dates: start: 20060113, end: 20060113
  5. PROPOFOL [Concomitant]
  6. SUFENTANIL CITRATE [Concomitant]
  7. SEVOFLURANE [Concomitant]
  8. GENTAMICIN SULFATE [Concomitant]
  9. ACETAMINOPHEN [Concomitant]
  10. RANITIDINE HYDROCHLORIDE [Concomitant]
  11. KETOPROFEN [Concomitant]
  12. OXYTOCIN [Concomitant]

REACTIONS (10)
  - ABDOMINAL PAIN [None]
  - AGITATION [None]
  - ANOXIA [None]
  - BRAIN DEATH [None]
  - CIRCULATORY COLLAPSE [None]
  - ELECTROCARDIOGRAM QRS COMPLEX ABNORMAL [None]
  - FEELING COLD [None]
  - LOSS OF CONSCIOUSNESS [None]
  - NAUSEA [None]
  - VENTRICULAR TACHYCARDIA [None]
